FAERS Safety Report 7737758-X (Version None)
Quarter: 2011Q3

REPORT INFORMATION
  Report Type: 
  Country: None (occurrence: None)
  Receive Date: 20110906
  Receipt Date: 20110819
  Transmission Date: 20111222
  Serious: Yes (Hospitalization)
  Sender: FDA-Public Use
  Company Number: 2011AP001831

PATIENT
  Age: 32 Year
  Sex: Female

DRUGS (1)
  1. CARBAMAZEPINE [Suspect]
     Indication: PRODUCT USED FOR UNKNOWN INDICATION
     Dosage: 32 G

REACTIONS (12)
  - OVERDOSE [None]
  - DEPRESSED LEVEL OF CONSCIOUSNESS [None]
  - HYPOREFLEXIA [None]
  - CARDIOVASCULAR DISORDER [None]
  - UNRESPONSIVE TO STIMULI [None]
  - CONVULSION [None]
  - HYPOXIA [None]
  - HYPOTENSION [None]
  - SUICIDE ATTEMPT [None]
  - HAEMODIALYSIS [None]
  - HYPOTONIA [None]
  - NERVOUS SYSTEM DISORDER [None]
